FAERS Safety Report 6512531-9 (Version None)
Quarter: 2009Q4

REPORT INFORMATION
  Report Type: 
  Country: None (occurrence: None)
  Receive Date: 20091222
  Receipt Date: 20091215
  Transmission Date: 20100525
  Serious: Yes (Hospitalization, Other)
  Sender: FDA-Public Use
  Company Number: DE-MERCK-0911DEU00063

PATIENT
  Age: 50 Year
  Sex: Female
  Weight: 58 kg

DRUGS (2)
  1. VYTORIN [Suspect]
     Indication: HYPERCHOLESTEROLAEMIA
     Route: 048
     Dates: start: 20070707, end: 20081221
  2. VYTORIN [Suspect]
     Indication: CORONARY ARTERY DISEASE
     Route: 048
     Dates: start: 20070707, end: 20081221

REACTIONS (3)
  - DRUG LEVEL INCREASED [None]
  - RENAL FAILURE [None]
  - RHABDOMYOLYSIS [None]
